FAERS Safety Report 11681940 (Version 1)
Quarter: 2015Q4

REPORT INFORMATION
  Report Type: Spontaneous
  Country: US (occurrence: None)
  Receive Date: 20151028
  Receipt Date: 20151028
  Transmission Date: 20160304
  Serious: Yes (Other)
  Sender: FDA-Public Use
  Company Number: None

PATIENT
  Age: 38 Year
  Sex: Male
  Weight: 90.72 kg

DRUGS (2)
  1. WELLBUTRIN [Concomitant]
     Active Substance: BUPROPION HYDROCHLORIDE
  2. SUBOXONE [Suspect]
     Active Substance: BUPRENORPHINE HYDROCHLORIDE\NALOXONE HYDROCHLORIDE
     Indication: DRUG DEPENDENCE
     Dosage: 1 PILL TAKEN UNDER THE TONGUE
     Dates: start: 20150131, end: 20151027

REACTIONS (5)
  - Migraine [None]
  - Somnolence [None]
  - Drug withdrawal syndrome [None]
  - Product quality issue [None]
  - No therapeutic response [None]

NARRATIVE: CASE EVENT DATE: 20151024
